FAERS Safety Report 14302332 (Version 1)
Quarter: 2017Q4

REPORT INFORMATION
  Report Type: Spontaneous
  Country: US (occurrence: US)
  Receive Date: 20171219
  Receipt Date: 20171219
  Transmission Date: 20180321
  Serious: No
  Sender: FDA-Public Use
  Company Number: US-SUPERNUS PHARMACEUTICALS, INC.-2017SUP00178

PATIENT
  Sex: Female

DRUGS (4)
  1. TROKENDI XR [Suspect]
     Active Substance: TOPIRAMATE
     Indication: NERVE COMPRESSION
     Dosage: 25 MG, 1X/DAY
  2. TROKENDI XR [Suspect]
     Active Substance: TOPIRAMATE
     Indication: PAIN
  3. TROKENDI XR [Suspect]
     Active Substance: TOPIRAMATE
     Indication: PAIN
     Dosage: 25 MG, 1X/DAY
  4. TROKENDI XR [Suspect]
     Active Substance: TOPIRAMATE
     Indication: NERVE COMPRESSION
     Dosage: 50 MG, 1X/DAY

REACTIONS (5)
  - Malaise [Not Recovered/Not Resolved]
  - Drug intolerance [Recovering/Resolving]
  - Dizziness [Recovering/Resolving]
  - Off label use [Not Recovered/Not Resolved]
  - Somnolence [Not Recovered/Not Resolved]
